FAERS Safety Report 7016538-7 (Version None)
Quarter: 2010Q3

REPORT INFORMATION
  Report Type: 
  Country: None (occurrence: None)
  Receive Date: 20100927
  Receipt Date: 20100907
  Transmission Date: 20110219
  Serious: Yes (Other)
  Sender: FDA-Public Use
  Company Number: A0866605A

PATIENT
  Sex: Female

DRUGS (2)
  1. WELLBUTRIN XL [Suspect]
     Indication: MAJOR DEPRESSION
     Dosage: 150MG PER DAY
     Route: 048
     Dates: start: 20090901, end: 20090918
  2. CLODRONATE [Concomitant]
     Indication: BREAST CANCER
     Dosage: 1600MG PER DAY
     Route: 048

REACTIONS (1)
  - RASH [None]
